FAERS Safety Report 24675531 (Version 1)
Quarter: 2024Q4

REPORT INFORMATION
  Report Type: Other
  Country: MX (occurrence: MX)
  Receive Date: 20241128
  Receipt Date: 20241128
  Transmission Date: 20250115
  Serious: Yes (Other)
  Sender: NUVO PHARMACEUTICALS
  Company Number: MX-Nuvo Pharmaceuticals Inc-2166165

PATIENT
  Age: 39 Year
  Sex: Female

DRUGS (2)
  1. NAPROXEN [Suspect]
     Active Substance: NAPROXEN
     Indication: Product used for unknown indication
  2. ACETAMINOPHEN [Suspect]
     Active Substance: ACETAMINOPHEN

REACTIONS (1)
  - Acute generalised exanthematous pustulosis [Unknown]
